FAERS Safety Report 7024536-2 (Version None)
Quarter: 2010Q4

REPORT INFORMATION
  Report Type: 
  Country: None (occurrence: None)
  Receive Date: 20101001
  Receipt Date: 20100929
  Transmission Date: 20110411
  Serious: Yes (Hospitalization)
  Sender: FDA-Public Use
  Company Number: B0676847A

PATIENT
  Sex: Female

DRUGS (2)
  1. AUGMENTIN '125' [Suspect]
     Indication: PRODUCT USED FOR UNKNOWN INDICATION
     Route: 048
     Dates: start: 20100831, end: 20100903
  2. OFLOCET [Suspect]
     Indication: PRODUCT USED FOR UNKNOWN INDICATION
     Route: 048
     Dates: start: 20100831, end: 20100906

REACTIONS (5)
  - DERMATITIS EXFOLIATIVE [None]
  - PRURITUS [None]
  - RASH SCARLATINIFORM [None]
  - SKIN LESION [None]
  - TOXIC SKIN ERUPTION [None]
